FAERS Safety Report 13478607 (Version 1)
Quarter: 2017Q2

REPORT INFORMATION
  Report Type: Report from Study
  Country: None (occurrence: BR)
  Receive Date: 20170425
  Receipt Date: 20170425
  Transmission Date: 20170830
  Serious: Yes (Other)
  Sender: FDA-Public Use
  Company Number: BR-ABBVIE-17K-020-1953407-00

PATIENT
  Sex: Female
  Weight: 85 kg

DRUGS (5)
  1. VITAMIN D [Concomitant]
     Active Substance: CHOLECALCIFEROL
     Indication: PRODUCT USED FOR UNKNOWN INDICATION
  2. B VITAMIN COMPLEX [Concomitant]
     Indication: PRODUCT USED FOR UNKNOWN INDICATION
  3. SLOW [Concomitant]
     Indication: BLOOD POTASSIUM
  4. SPIROLACTON [Concomitant]
     Indication: HYPERSENSITIVITY
  5. HUMIRA [Suspect]
     Active Substance: ADALIMUMAB
     Indication: CROHN^S DISEASE
     Route: 058
     Dates: start: 20110424

REACTIONS (5)
  - Erythema [Unknown]
  - Dyspnoea [Unknown]
  - Immunodeficiency [Unknown]
  - Laryngeal oedema [Recovered/Resolved]
  - Depression [Not Recovered/Not Resolved]

NARRATIVE: CASE EVENT DATE: 2013
